FAERS Safety Report 5340195-9 (Version None)
Quarter: 2007Q2

REPORT INFORMATION
  Report Type: 
  Country: None (occurrence: None)
  Receive Date: 20070531
  Receipt Date: 20070523
  Transmission Date: 20071010
  Serious: Yes (Hospitalization)
  Sender: FDA-Public Use
  Company Number: B0473009A

PATIENT
  Age: 75 Year
  Sex: Male

DRUGS (1)
  1. MALARONE [Suspect]
     Indication: MALARIA PROPHYLAXIS
     Route: 048
     Dates: start: 20070212

REACTIONS (4)
  - APLASTIC ANAEMIA [None]
  - ASTHENIA [None]
  - HAEMATOMA [None]
  - RASH [None]
